FAERS Safety Report 8696653 (Version 2)
Quarter: 2012Q4

REPORT INFORMATION
  Report Type: 
  Country: FR (occurrence: FR)
  Receive Date: 20120801
  Receipt Date: 20121010
  Transmission Date: 20130627
  Serious: Yes (Hospitalization, Other)
  Sender: FDA-Public Use
  Company Number: FR-BAYER-2012-073658

PATIENT
  Age: 72 Year
  Sex: Female

DRUGS (10)
  1. NEXAVAR [Suspect]
     Dosage: UNK
     Dates: start: 201011, end: 20120525
  2. OFLOCET [Suspect]
     Indication: URINARY TRACT INFECTION
     Dosage: 200 mg, BID
     Route: 048
     Dates: start: 20120523, end: 20120602
  3. SPECIAFOLDINE [Concomitant]
     Dosage: 5 mg, QD
     Route: 048
  4. LEVOTHYROX [Concomitant]
     Dosage: 187.5 ?g, QD
     Route: 048
  5. PROPRANOLOL [Concomitant]
     Dosage: 160 mg, QD
     Route: 048
  6. LANTUS [Concomitant]
     Dosage: 8 iu, QD
     Route: 058
  7. NOVORAPID [Concomitant]
     Route: 058
  8. LASILIX [Concomitant]
     Dosage: 40 mg, QD
     Route: 048
  9. DIFFU K [Concomitant]
     Dosage: 600 mg, BID
     Route: 048
  10. VIALEBEX [Concomitant]
     Dosage: 20 mg, BID
     Route: 048
     Dates: start: 20120604, end: 20120607

REACTIONS (4)
  - Pancytopenia [Recovering/Resolving]
  - Diarrhoea [None]
  - Vomiting [None]
  - Urinary tract infection [None]
